FAERS Safety Report 25088255 (Version 1)
Quarter: 2025Q1

REPORT INFORMATION
  Report Type: Report from Study
  Country: CO (occurrence: CO)
  Receive Date: 20250318
  Receipt Date: 20250318
  Transmission Date: 20250408
  Serious: Yes (Hospitalization, Other)
  Sender: JOHNSON AND JOHNSON
  Company Number: CO-JNJFOC-20240916515

PATIENT
  Age: 44 Year
  Sex: Male
  Weight: 68 kg

DRUGS (4)
  1. INVEGA SUSTENNA [Suspect]
     Active Substance: PALIPERIDONE PALMITATE
     Indication: Schizophrenia
     Route: 030
     Dates: start: 2023
  2. INVEGA SUSTENNA [Suspect]
     Active Substance: PALIPERIDONE PALMITATE
  3. INVEGA SUSTENNA [Suspect]
     Active Substance: PALIPERIDONE PALMITATE
  4. APIXABAN [Concomitant]
     Active Substance: APIXABAN

REACTIONS (4)
  - Drug abuse [Unknown]
  - Psychotic disorder [Unknown]
  - Pulmonary artery thrombosis [Not Recovered/Not Resolved]
  - Refusal of treatment by patient [Unknown]
